FAERS Safety Report 7406236-X (Version None)
Quarter: 2011Q2

REPORT INFORMATION
  Report Type: 
  Country: None (occurrence: None)
  Receive Date: 20110411
  Receipt Date: 20110404
  Transmission Date: 20111010
  Serious: No
  Sender: FDA-Public Use
  Company Number: US-US-EMD SERONO, INC.-7047066

PATIENT
  Sex: Male
  Weight: 86 kg

DRUGS (4)
  1. REBIF [Suspect]
     Indication: PRIMARY PROGRESSIVE MULTIPLE SCLEROSIS
     Route: 058
     Dates: start: 20101010, end: 20110317
  2. BACLOFEN [Concomitant]
     Indication: MUSCLE SPASTICITY
  3. CIPROFLOXACIN [Concomitant]
  4. DIAZEPAM [Concomitant]

REACTIONS (4)
  - INJECTION SITE ERYTHEMA [None]
  - INJECTION SITE MASS [None]
  - ABDOMINAL PAIN UPPER [None]
  - DEPRESSION [None]
